FAERS Safety Report 6583361-7 (Version None)
Quarter: 2010Q1

REPORT INFORMATION
  Report Type: 
  Country: None (occurrence: None)
  Receive Date: 20100216
  Receipt Date: 20100204
  Transmission Date: 20100710
  Serious: Yes (Death)
  Sender: FDA-Public Use
  Company Number: ES-PFIZER INC-2010014945

PATIENT
  Age: 34 Year
  Sex: Female

DRUGS (2)
  1. ZELDOX [Suspect]
     Indication: SCHIZOAFFECTIVE DISORDER
     Dosage: 120 MG, UNK
  2. ZELDOX [Suspect]
     Indication: DELUSION

REACTIONS (1)
  - ACCIDENTAL DEATH [None]
